FAERS Safety Report 8304329-6 (Version None)
Quarter: 2012Q2

REPORT INFORMATION
  Report Type: 
  Country: None (occurrence: None)
  Receive Date: 20120423
  Receipt Date: 20120423
  Transmission Date: 20120825
  Serious: Yes (Other)
  Sender: FDA-Public Use
  Company Number: None

PATIENT
  Age: 49 Year
  Sex: Female
  Weight: 53.07 kg

DRUGS (1)
  1. CIPROFLOXACIN HCL [Suspect]

REACTIONS (10)
  - OSTEOARTHRITIS [None]
  - FATIGUE [None]
  - PAIN [None]
  - TENDON DISORDER [None]
  - OEDEMA PERIPHERAL [None]
  - SWELLING [None]
  - JOINT SWELLING [None]
  - ARTHRALGIA [None]
  - TENDON RUPTURE [None]
  - JOINT EFFUSION [None]
